FAERS Safety Report 8595711-0 (Version None)
Quarter: 2012Q3

REPORT INFORMATION
  Report Type: 
  Country: None (occurrence: None)
  Receive Date: 20120801
  Receipt Date: 20120714
  Transmission Date: 20120928
  Serious: Yes (Death)
  Sender: FDA-Public Use
  Company Number: ADR-UNK-066

PATIENT
  Sex: Male

DRUGS (2)
  1. EFAVIRENZ TABLETS 600 MG/ (UNKNOWN MANUFACTURER) [Suspect]
     Dosage: 600 MG + ORAL
     Route: 048
     Dates: start: 20110411
  2. LAMIVUDINE/ZIDOVUDINE [Suspect]
     Indication: ACQUIRED IMMUNODEFICIENCY SYNDROME
     Dosage: 4TAB/CAPS+ORAL
     Route: 048
     Dates: start: 20110411

REACTIONS (2)
  - STILLBIRTH [None]
  - MATERNAL DRUGS AFFECTING FOETUS [None]
